FAERS Safety Report 18638291 (Version 1)
Quarter: 2020Q4

REPORT INFORMATION
  Report Type: Report from Study
  Country: US (occurrence: US)
  Receive Date: 20201218
  Receipt Date: 20201218
  Transmission Date: 20210114
  Serious: No
  Sender: FDA-Public Use
  Company Number: US-REGENERON PHARMACEUTICALS, INC.-2020-82309

PATIENT

DRUGS (2)
  1. EYLEA [Suspect]
     Active Substance: AFLIBERCEPT
     Dosage: UNK
     Route: 031
     Dates: start: 20201009, end: 20201009
  2. EYLEA [Suspect]
     Active Substance: AFLIBERCEPT
     Indication: THROMBOSIS
     Dosage: UNK
     Route: 031
     Dates: start: 202009, end: 20201009

REACTIONS (3)
  - Vision blurred [Not Recovered/Not Resolved]
  - Off label use [Unknown]
  - Injection site pain [Recovered/Resolved]

NARRATIVE: CASE EVENT DATE: 2020
